FAERS Safety Report 8984200 (Version 1)
Quarter: 2012Q4

REPORT INFORMATION
  Report Type: Spontaneous
  Country: AT (occurrence: None)
  Receive Date: 20121212
  Receipt Date: 20121212
  Transmission Date: 20130627
  Serious: Yes (Other)
  Sender: FDA-Public Use
  Company Number: AT-1195558

PATIENT
  Age: 47 Year
  Sex: Female
  Weight: 70 kg

DRUGS (1)
  1. CILOXAN [Suspect]
     Indication: CONJUNCTIVITIS
     Route: 047
     Dates: start: 20121112, end: 20121113

REACTIONS (1)
  - Urticaria [None]
